FAERS Safety Report 11468062 (Version 1)
Quarter: 2015Q3

REPORT INFORMATION
  Report Type: Spontaneous
  Country: US (occurrence: US)
  Receive Date: 20150908
  Receipt Date: 20150908
  Transmission Date: 20151125
  Serious: No
  Sender: FDA-Public Use
  Company Number: US-PFIZER INC-2015285739

PATIENT
  Age: 73 Year
  Sex: Female
  Weight: 79.8 kg

DRUGS (1)
  1. IBRANCE [Suspect]
     Active Substance: PALBOCICLIB
     Indication: BREAST CANCER
     Dosage: 125 MG, DAY 1-21 EVERY 28 DAYS
     Route: 048
     Dates: start: 20150613

REACTIONS (2)
  - Nasopharyngitis [Unknown]
  - White blood cell count increased [Unknown]
